FAERS Safety Report 9898039 (Version 1)
Quarter: 2014Q1

REPORT INFORMATION
  Report Type: Spontaneous
  Country: US (occurrence: US)
  Receive Date: 20140214
  Receipt Date: 20140214
  Transmission Date: 20141002
  Serious: Yes (Other)
  Sender: FDA-Public Use
  Company Number: US-ASTRAZENECA-2014SE09167

PATIENT
  Sex: Male

DRUGS (3)
  1. ZOLADEX [Suspect]
     Indication: PROSTATE CANCER METASTATIC
     Route: 058
  2. ZOLADEX [Suspect]
     Indication: PROSTATE CANCER METASTATIC
     Route: 058
  3. HORMONE [Concomitant]

REACTIONS (5)
  - Malignant neoplasm progression [Unknown]
  - Fatigue [Unknown]
  - Mood altered [Unknown]
  - Insomnia [Unknown]
  - Hot flush [Unknown]
